FAERS Safety Report 6903657-6 (Version None)
Quarter: 2010Q3

REPORT INFORMATION
  Report Type: 
  Country: None (occurrence: None)
  Receive Date: 20100803
  Receipt Date: 20081101
  Transmission Date: 20110219
  Serious: No
  Sender: FDA-Public Use
  Company Number: US-PFIZER INC-2008058448

PATIENT
  Sex: Female
  Weight: 61.4 kg

DRUGS (8)
  1. LYRICA [Suspect]
     Indication: FIBROMYALGIA
     Route: 048
     Dates: start: 20080602
  2. DRUG, UNSPECIFIED [Concomitant]
  3. FRAGMIN [Concomitant]
     Indication: DEEP VEIN THROMBOSIS
  4. AVAPRO [Concomitant]
  5. CRESTOR [Concomitant]
  6. ETANERCEPT [Concomitant]
  7. FLEXERIL [Concomitant]
  8. NORTRIPTYLINE [Concomitant]

REACTIONS (4)
  - FLUID RETENTION [None]
  - OEDEMA PERIPHERAL [None]
  - SOMNOLENCE [None]
  - WEIGHT INCREASED [None]
